FAERS Safety Report 21672628 (Version 1)
Quarter: 2022Q4

REPORT INFORMATION
  Report Type: Spontaneous
  Country: AT (occurrence: AT)
  Receive Date: 20221202
  Receipt Date: 20221202
  Transmission Date: 20230113
  Serious: Yes (Other)
  Sender: FDA-Public Use
  Company Number: AT-PFIZER INC-202201298681

PATIENT
  Age: 18 Year
  Sex: Male

DRUGS (3)
  1. POSACONAZOLE [Interacting]
     Active Substance: POSACONAZOLE
     Dosage: UNK
  2. VINCRISTINE SULFATE [Interacting]
     Active Substance: VINCRISTINE SULFATE
     Dosage: PROTOCOL IIA1, FOURTH DOSE DISCONTINUED ON DAY 28
  3. PIPERACILLIN SODIUM\TAZOBACTAM SODIUM [Concomitant]
     Active Substance: PIPERACILLIN SODIUM\TAZOBACTAM SODIUM
     Indication: T-cell type acute leukaemia
     Dosage: BLOCK IB

REACTIONS (3)
  - Toxicity to various agents [Unknown]
  - Ileus paralytic [Unknown]
  - Drug interaction [Unknown]
